FAERS Safety Report 22259012 (Version 1)
Quarter: 2023Q2

REPORT INFORMATION
  Report Type: Spontaneous
  Country: US (occurrence: US)
  Receive Date: 20230427
  Receipt Date: 20230427
  Transmission Date: 20230721
  Serious: Yes (Other)
  Sender: FDA-Public Use
  Company Number: US-Shilpa Medicare Limited-SML-US-2023-00512

PATIENT
  Age: 71 Year
  Sex: Male

DRUGS (3)
  1. AZACITIDINE [Suspect]
     Active Substance: AZACITIDINE
     Indication: Primary myelofibrosis
  2. VENETOCLAX [Suspect]
     Active Substance: VENETOCLAX
     Indication: Primary myelofibrosis
  3. CYTARABINE\DAUNORUBICIN [Suspect]
     Active Substance: CYTARABINE\DAUNORUBICIN
     Indication: Primary myelofibrosis
     Dosage: CYTARABINE 100 MG/M2/DAUNORUBICIN 44MG
     Route: 042

REACTIONS (1)
  - Drug ineffective [Unknown]
